FAERS Safety Report 16124081 (Version 1)
Quarter: 2019Q1

REPORT INFORMATION
  Report Type: Report from Study
  Country: FR (occurrence: FR)
  Receive Date: 20190327
  Receipt Date: 20190327
  Transmission Date: 20190418
  Serious: Yes (Death, Life-Threatening, Hospitalization)
  Sender: FDA-Public Use
  Company Number: FR-009507513-2007-157360-NL

PATIENT
  Age: 92 Year
  Sex: Male

DRUGS (5)
  1. DI-ANTALVIC [Suspect]
     Active Substance: ACETAMINOPHEN\PROPOXYPHENE HYDROCHLORIDE
     Dosage: CONTINUING: NO
     Route: 048
     Dates: end: 20060727
  2. SERESTA [Suspect]
     Active Substance: OXAZEPAM
     Dosage: CONTINUING: NO, UNIT DOSE: 50 MG
     Route: 048
     Dates: end: 20060727
  3. INIPOMP [Suspect]
     Active Substance: PANTOPRAZOLE SODIUM
     Dosage: CONTINUING: NO
     Route: 048
     Dates: end: 20060802
  4. MORPHINE [Concomitant]
     Active Substance: MORPHINE
     Dosage: UNK
  5. NORSET [Suspect]
     Active Substance: MIRTAZAPINE
     Indication: PRODUCT USED FOR UNKNOWN INDICATION
     Dosage: DOSE TEXT: START BEFORE 25 JULY 2006, CONTINUING: NO
     Route: 048
     Dates: end: 20060802

REACTIONS (4)
  - Condition aggravated [Fatal]
  - Altered state of consciousness [Unknown]
  - Dehydration [Fatal]
  - Renal failure [Fatal]

NARRATIVE: CASE EVENT DATE: 200607
